FAERS Safety Report 8463513-1 (Version None)
Quarter: 2012Q2

REPORT INFORMATION
  Report Type: 
  Country: None (occurrence: None)
  Receive Date: 20120625
  Receipt Date: 20120618
  Transmission Date: 20120825
  Serious: Yes (Other)
  Sender: FDA-Public Use
  Company Number: US-PFIZER INC-2012130666

PATIENT
  Sex: Male
  Weight: 86.168 kg

DRUGS (3)
  1. METFORMIN [Concomitant]
     Indication: DIABETES MELLITUS
     Dosage: 500 MG, UNK
  2. VIAGRA [Suspect]
     Indication: ERECTILE DYSFUNCTION
     Dosage: 50 MG, AS NEEDED
     Route: 048
     Dates: start: 20100301, end: 20100301
  3. VIAGRA [Suspect]
     Dosage: 100 MG, AS NEEDED
     Dates: start: 20100301

REACTIONS (2)
  - DRUG INEFFECTIVE [None]
  - VASCULAR COMPRESSION [None]
